FAERS Safety Report 16810646 (Version 1)
Quarter: 2019Q3

REPORT INFORMATION
  Report Type: Spontaneous
  Country: GB (occurrence: GB)
  Receive Date: 20190916
  Receipt Date: 20190916
  Transmission Date: 20191005
  Serious: Yes (Hospitalization)
  Sender: FDA-Public Use
  Company Number: GB-MYLANLABS-2019M1085602

PATIENT
  Age: 80 Year
  Sex: Female

DRUGS (8)
  1. RANITIDINE. [Concomitant]
     Active Substance: RANITIDINE
     Dosage: 300 MILLIGRAM, QD
     Dates: start: 20190203
  2. PARACETAMOL [Concomitant]
     Active Substance: ACETAMINOPHEN
     Dosage: 500 MILLIGRAM, PRN (1-2 FOUR TIMES DAILY)
     Route: 048
  3. ESTRIOL [Concomitant]
     Active Substance: ESTRIOL
     Dosage: CREAM WITH APPLICATOR
     Route: 061
  4. WHITE SOFT PARAFFIN [Concomitant]
     Active Substance: PARAFFIN
     Dosage: UNK UNK, PRN
     Route: 061
  5. OMEPRAZOLE. [Suspect]
     Active Substance: OMEPRAZOLE
     Indication: PRODUCT USED FOR UNKNOWN INDICATION
     Dosage: 20 MILLIGRAM, QD
     Route: 048
     Dates: start: 20190116, end: 20190203
  6. MACROGOL [Concomitant]
     Active Substance: POLYETHYLENE GLYCOLS
     Dosage: UNK UNK, PRN
     Route: 048
  7. LIQUID PARAFFIN [Concomitant]
     Dosage: UNK UNK, PRN
     Route: 061
  8. RAMIPRIL. [Suspect]
     Active Substance: RAMIPRIL
     Indication: PRODUCT USED FOR UNKNOWN INDICATION
     Dosage: 2.5 MILLIGRAM, QD
     Route: 048
     Dates: start: 20181228, end: 20190208

REACTIONS (2)
  - Hyponatraemia [Recovered/Resolved]
  - Confusional state [Unknown]

NARRATIVE: CASE EVENT DATE: 20190207
